FAERS Safety Report 8510499-7 (Version None)
Quarter: 2012Q3

REPORT INFORMATION
  Report Type: 
  Country: None (occurrence: None)
  Receive Date: 20120716
  Receipt Date: 20120703
  Transmission Date: 20120928
  Serious: Yes (Hospitalization, Other)
  Sender: FDA-Public Use
  Company Number: FR-BRISTOL-MYERS SQUIBB COMPANY-16742850

PATIENT
  Age: 35 Year
  Sex: Male

DRUGS (2)
  1. COUMADIN [Suspect]
     Route: 048
     Dates: start: 20100901, end: 20110501
  2. LOVENOX [Suspect]
     Route: 058
     Dates: start: 20110518

REACTIONS (6)
  - PERITONEAL HAEMORRHAGE [None]
  - GASTROINTESTINAL HAEMORRHAGE [None]
  - ASCITES [None]
  - JAUNDICE [None]
  - THROMBOCYTOPENIA [None]
  - PORTAL VEIN THROMBOSIS [None]
